FAERS Safety Report 8144661-2 (Version None)
Quarter: 2012Q1

REPORT INFORMATION
  Report Type: 
  Country: None (occurrence: None)
  Receive Date: 20120217
  Receipt Date: 20120210
  Transmission Date: 20120608
  Serious: Yes (Hospitalization, Other)
  Sender: FDA-Public Use
  Company Number: FR-JNJFOC-20120201499

PATIENT
  Sex: Male
  Weight: 82 kg

DRUGS (6)
  1. XARELTO [Suspect]
     Indication: KNEE ARTHROPLASTY
     Route: 048
     Dates: start: 20111116
  2. VENOFER [Concomitant]
     Route: 059
     Dates: start: 20111116, end: 20111118
  3. ACETAMINOPHEN [Concomitant]
  4. NEXIUM [Concomitant]
     Indication: PROPHYLAXIS AGAINST GASTROINTESTINAL ULCER
  5. TRANEXAMIC ACID [Concomitant]
  6. FERROUS SULFATE TAB [Concomitant]
     Dates: start: 20111118, end: 20111122

REACTIONS (3)
  - HAEMARTHROSIS [None]
  - THROMBOCYTOSIS [None]
  - LEUKOCYTOSIS [None]
